FAERS Safety Report 6337890-1 (Version None)
Quarter: 2009Q3

REPORT INFORMATION
  Report Type: 
  Country: None (occurrence: None)
  Receive Date: 20090902
  Receipt Date: 20090827
  Transmission Date: 20100115
  Serious: Yes (Hospitalization)
  Sender: FDA-Public Use
  Company Number: US-GILEAD-2009-0023649

PATIENT
  Sex: Female
  Weight: 98.518 kg

DRUGS (18)
  1. LETAIRIS [Suspect]
     Indication: PULMONARY ARTERIAL HYPERTENSION
     Route: 048
     Dates: start: 20081219
  2. TOPROL-XL [Concomitant]
  3. DILTIAZEM [Concomitant]
  4. HYDROCHLOROTHIAZIDE [Concomitant]
  5. ASPIRIN [Concomitant]
  6. LESCOL [Concomitant]
  7. LASIX [Concomitant]
  8. ACETAZOLAMIDE [Concomitant]
  9. TRICOR [Concomitant]
  10. RAMIPRIL [Concomitant]
  11. OXYGEN [Concomitant]
  12. XALATAN [Concomitant]
  13. METAGLIP [Concomitant]
  14. LEVEMIR [Concomitant]
  15. LEVOXYL [Concomitant]
  16. CENTRUM [Concomitant]
  17. CALCIUM [Concomitant]
  18. REPLIVA [Concomitant]

REACTIONS (1)
  - PULMONARY HYPERTENSION [None]
